FAERS Safety Report 9019809 (Version 2)
Quarter: 2013Q1

REPORT INFORMATION
  Report Type: Report from Study
  Country: JP (occurrence: JP)
  Receive Date: 20130118
  Receipt Date: 20130319
  Transmission Date: 20140127
  Serious: Yes (Other)
  Sender: FDA-Public Use
  Company Number: JP-VERTEX PHARMACEUTICALS INC.-2013-000727

PATIENT
  Age: 61 Year
  Sex: Female

DRUGS (12)
  1. VX-950 (TELAPREVIR) [Suspect]
     Indication: CHRONIC HEPATITIS C
     Dosage: 2250 MG, QD
     Route: 048
     Dates: start: 20120703, end: 20120816
  2. VX-950 (TELAPREVIR) [Suspect]
     Dosage: 750 MG, QD
     Route: 048
     Dates: start: 20120904, end: 20120924
  3. VX-950 (TELAPREVIR) [Suspect]
     Dosage: 1000 MG, QD
     Route: 048
     Dates: start: 20120925, end: 20121001
  4. VX-950 (TELAPREVIR) [Suspect]
     Dosage: 1250 MG, QD
     Route: 048
     Dates: start: 20121002, end: 20121106
  5. VX-950 (TELAPREVIR) [Suspect]
     Dosage: 750 MG, QD
     Route: 048
     Dates: start: 20121128, end: 20121204
  6. VX-950 (TELAPREVIR) [Suspect]
     Dosage: 1000 MG, QD
     Route: 048
     Dates: start: 20121205, end: 20130108
  7. REBETOL [Suspect]
     Indication: CHRONIC HEPATITIS C
     Dosage: 600 MG, QD
     Route: 048
     Dates: start: 20120703, end: 20120716
  8. REBETOL [Suspect]
     Dosage: 200 MG, QD
     Route: 048
     Dates: start: 20120717, end: 20120924
  9. REBETOL [Suspect]
     Dosage: 400 MG, QD
     Route: 048
     Dates: start: 20120925, end: 20121106
  10. REBETOL [Suspect]
     Dosage: 200 MG, QD
     Route: 048
     Dates: start: 20121128, end: 20130108
  11. PEGINTRON [Suspect]
     Indication: CHRONIC HEPATITIS C
     Dosage: 1.5 ?G/KG, WEEK
     Route: 058
     Dates: start: 20120703, end: 20121030
  12. PEGINTRON [Suspect]
     Dosage: 1.5 ?G/KG, WEEK
     Route: 058
     Dates: start: 20121128, end: 20130102

REACTIONS (2)
  - Gastric ulcer [Recovered/Resolved]
  - Haemoglobin decreased [Not Recovered/Not Resolved]
